FAERS Safety Report 7523065-7 (Version None)
Quarter: 2011Q2

REPORT INFORMATION
  Report Type: 
  Country: None (occurrence: None)
  Receive Date: 20110603
  Receipt Date: 20110602
  Transmission Date: 20111010
  Serious: Yes (Death)
  Sender: FDA-Public Use
  Company Number: VE-PFIZER INC-2011070001

PATIENT
  Age: 60 Year
  Sex: Male

DRUGS (2)
  1. LIPITOR [Suspect]
     Indication: HYPERCHOLESTEROLAEMIA
     Dosage: 40 MG, 1X/DAY
     Route: 048
     Dates: start: 20101101, end: 20110504
  2. METFORMIN HYDROCHLORIDE/VILDAGLIPTIN [Concomitant]
     Indication: DIABETES MELLITUS
     Dosage: 750 MG / 50 MG, 2X/DAY
     Route: 048
     Dates: start: 20101101, end: 20110504

REACTIONS (1)
  - MYOCARDIAL INFARCTION [None]
